FAERS Safety Report 8776255 (Version 1)
Quarter: 2012Q4

REPORT INFORMATION
  Report Type: 
  Country: US (occurrence: US)
  Receive Date: 20120910
  Receipt Date: 20120910
  Transmission Date: 20130627
  Serious: No
  Sender: FDA-Public Use
  Company Number: US-009507513-1208USA008701

PATIENT

DRUGS (1)
  1. NUVARING [Suspect]
     Dosage: 1 ring for 3 weeks, followed by a week (of ring) free interval.
     Route: 067

REACTIONS (3)
  - Unintended pregnancy [Unknown]
  - Abnormal withdrawal bleeding [Not Recovered/Not Resolved]
  - Inappropriate schedule of drug administration [Unknown]
